FAERS Safety Report 21535248 (Version 1)
Quarter: 2022Q4

REPORT INFORMATION
  Report Type: Spontaneous
  Country: US (occurrence: US)
  Receive Date: 20221101
  Receipt Date: 20221101
  Transmission Date: 20230113
  Serious: No
  Sender: FDA-Public Use
  Company Number: US-MIGRATION_PFIZER-2022BHV001998

PATIENT
  Age: 43 Year
  Sex: Female
  Weight: 104.42 kg

DRUGS (2)
  1. NURTEC ODT [Suspect]
     Active Substance: RIMEGEPANT SULFATE
     Indication: Migraine
     Dosage: HAD TAKEN NURTEC PRIOR TO HAVING COVID-19 IN DEC2021
     Route: 060
  2. SUMATRIPTAN [Suspect]
     Active Substance: SUMATRIPTAN
     Indication: Migraine
     Route: 065

REACTIONS (2)
  - Drug ineffective [Not Recovered/Not Resolved]
  - COVID-19 [Recovered/Resolved]

NARRATIVE: CASE EVENT DATE: 20211201
